FAERS Safety Report 12223280 (Version 2)
Quarter: 2016Q3

REPORT INFORMATION
  Report Type: Spontaneous
  Country: US (occurrence: US)
  Receive Date: 20160330
  Receipt Date: 20160726
  Transmission Date: 20161109
  Serious: Yes (Other)
  Sender: FDA-Public Use
  Company Number: US-ASTRAZENECA-2016SE32031

PATIENT
  Age: 90 Year
  Sex: Male

DRUGS (16)
  1. PROSCAR [Concomitant]
     Active Substance: FINASTERIDE
     Route: 048
  2. PEN-V [Concomitant]
     Route: 048
  3. PRAVACHOL [Concomitant]
     Active Substance: PRAVASTATIN SODIUM
     Route: 048
  4. DIPHENHYDRAMINE. [Concomitant]
     Active Substance: DIPHENHYDRAMINE
  5. LUPRON [Suspect]
     Active Substance: LEUPROLIDE ACETATE
     Indication: PROSTATE CANCER
     Route: 065
     Dates: start: 201305
  6. METANX [Concomitant]
     Active Substance: LEVOMEFOLATE CALCIUM\METHYLCOBALAMIN\PYRIDOXAL PHOSPHATE ANHYDROUS
     Route: 048
  7. PLAVIX [Concomitant]
     Active Substance: CLOPIDOGREL BISULFATE
     Route: 048
  8. PROTONIX [Suspect]
     Active Substance: PANTOPRAZOLE SODIUM
     Route: 048
  9. ASA [Concomitant]
     Active Substance: ASPIRIN
  10. XGEVA [Concomitant]
     Active Substance: DENOSUMAB
  11. CASODEX [Suspect]
     Active Substance: BICALUTAMIDE
     Route: 048
  12. CARDURA [Suspect]
     Active Substance: DOXAZOSIN MESYLATE
     Route: 048
  13. XTANDI [Concomitant]
     Active Substance: ENZALUTAMIDE
  14. CARDURA [Suspect]
     Active Substance: DOXAZOSIN MESYLATE
     Route: 048
  15. ECOTRIN [Concomitant]
     Active Substance: ASPIRIN
     Route: 048
  16. LASIX [Concomitant]
     Active Substance: FUROSEMIDE
     Route: 048

REACTIONS (7)
  - Metastases to bone [Unknown]
  - Dehydration [Unknown]
  - Therapy cessation [Unknown]
  - Malignant neoplasm progression [Unknown]
  - Osteonecrosis of jaw [Unknown]
  - Myalgia [Recovered/Resolved]
  - Back pain [Recovered/Resolved]
